FAERS Safety Report 11709646 (Version 1)
Quarter: 2015Q4

REPORT INFORMATION
  Report Type: Spontaneous
  Country: US (occurrence: US)
  Receive Date: 20151104
  Receipt Date: 20151104
  Transmission Date: 20160304
  Serious: No
  Sender: FDA-Public Use
  Company Number: US-ELI_LILLY_AND_COMPANY-US201102005402

PATIENT
  Age: 71 Year
  Weight: 55.33 kg

DRUGS (2)
  1. FORTEO [Suspect]
     Active Substance: TERIPARATIDE
     Indication: OSTEOPOROSIS
     Dosage: 20 UG, DAILY (1/D)
     Route: 058
     Dates: start: 2008, end: 2008
  2. FORTEO [Suspect]
     Active Substance: TERIPARATIDE
     Dosage: 20 UG, DAILY (1/D)
     Route: 058
     Dates: start: 201012

REACTIONS (4)
  - Injection site swelling [Unknown]
  - Injection site rash [Unknown]
  - Injection site discolouration [Unknown]
  - Spinal operation [Unknown]

NARRATIVE: CASE EVENT DATE: 201101
